FAERS Safety Report 6923497-1 (Version None)
Quarter: 2010Q3

REPORT INFORMATION
  Report Type: 
  Country: None (occurrence: None)
  Receive Date: 20100813
  Receipt Date: 20100803
  Transmission Date: 20110219
  Serious: No
  Sender: FDA-Public Use
  Company Number: B0619251A

PATIENT
  Sex: Female
  Weight: 48 kg

DRUGS (2)
  1. RELENZA [Suspect]
     Indication: ANTIVIRAL PROPHYLAXIS
     Dosage: 10MG PER DAY
     Route: 055
     Dates: start: 20091217, end: 20091226
  2. RITODRINE HYDROCHLORIDE [Concomitant]
     Route: 048
     Dates: start: 20100422, end: 20100505

REACTIONS (2)
  - DELIVERY [None]
  - DRUG EXPOSURE DURING PREGNANCY [None]
